FAERS Safety Report 11280302 (Version 1)
Quarter: 2015Q3

REPORT INFORMATION
  Report Type: Spontaneous
  Country: US (occurrence: None)
  Receive Date: 20150716
  Receipt Date: 20150716
  Transmission Date: 20151125
  Serious: Yes (Life-Threatening, Hospitalization)
  Sender: FDA-Public Use
  Company Number: None

PATIENT
  Age: 26 Year
  Sex: Female
  Weight: 95.26 kg

DRUGS (4)
  1. VITAMIN D2 [Concomitant]
     Active Substance: ERGOCALCIFEROL
  2. MULTIVIT. PROBIOTICS [Concomitant]
  3. VITAMIN C [Concomitant]
     Active Substance: ASCORBIC ACID
  4. DOXYCYCLINE MONOHYDRATE [Suspect]
     Active Substance: DOXYCYCLINE
     Indication: ROCKY MOUNTAIN SPOTTED FEVER
     Dosage: 1 PILL
     Route: 048
     Dates: start: 20150713, end: 20150713

REACTIONS (2)
  - Hypersensitivity [None]
  - Anaphylactic shock [None]

NARRATIVE: CASE EVENT DATE: 20150714
